FAERS Safety Report 5479631-6 (Version None)
Quarter: 2007Q4

REPORT INFORMATION
  Report Type: 
  Country: None (occurrence: None)
  Receive Date: 20071008
  Receipt Date: 20071002
  Transmission Date: 20080405
  Serious: Yes (Other)
  Sender: FDA-Public Use
  Company Number: A0670635A

PATIENT
  Age: 83 Year
  Sex: Female

DRUGS (3)
  1. COREG CR [Suspect]
     Indication: HYPERTENSION
     Dosage: 3.25MG PER DAY
     Route: 048
     Dates: start: 20070628
  2. HYZAAR [Concomitant]
  3. VITAMINS [Concomitant]

REACTIONS (3)
  - SUICIDAL IDEATION [None]
  - THINKING ABNORMAL [None]
  - THOUGHT INSERTION [None]
